FAERS Safety Report 8551907 (Version 5)
Quarter: 2013Q2

REPORT INFORMATION
  Report Type: Report from Study
  Country: RO (occurrence: RO)
  Receive Date: 20120508
  Receipt Date: 20130530
  Transmission Date: 20140414
  Serious: Yes (Hospitalization)
  Sender: FDA-Public Use
  Company Number: RO-ROCHE-1066484

PATIENT
  Age: 52 Year
  Sex: Female
  Weight: 55 kg

DRUGS (6)
  1. PEG-INTERFERON ALFA 2A [Suspect]
     Indication: HEPATITIS C
     Dosage: LAST DOSE: 07/MAR/2012
     Route: 065
     Dates: start: 20111213, end: 20120307
  2. PEG-INTERFERON ALFA 2A [Suspect]
     Route: 065
     Dates: start: 20120320
  3. RIBAVIRIN [Suspect]
     Indication: HEPATITIS C
     Dosage: LAST DOSE: 09/MAR/2012
     Route: 065
     Dates: start: 20111213, end: 20120309
  4. RIBAVIRIN [Suspect]
     Route: 065
     Dates: start: 20120314
  5. ALISPORIVIR [Suspect]
     Indication: HEPATITIS C
     Dosage: 09/MAR/2012: LAST DOSE RECEIVED
     Route: 048
     Dates: start: 20111213, end: 20120309
  6. ALISPORIVIR [Suspect]
     Route: 048
     Dates: start: 20120314

REACTIONS (2)
  - Depression [Recovering/Resolving]
  - Epistaxis [Recovered/Resolved]
